APPROVED DRUG PRODUCT: TRIHEXYPHENIDYL HYDROCHLORIDE
Active Ingredient: TRIHEXYPHENIDYL HYDROCHLORIDE
Strength: 2MG
Dosage Form/Route: TABLET;ORAL
Application: A040184 | Product #001
Applicant: WATSON LABORATORIES INC
Approved: Feb 6, 1998 | RLD: No | RS: No | Type: DISCN